FAERS Safety Report 8080264-6 (Version None)
Quarter: 2012Q1

REPORT INFORMATION
  Report Type: 
  Country: None (occurrence: None)
  Receive Date: 20120130
  Receipt Date: 20120120
  Transmission Date: 20120608
  Serious: Yes (Other)
  Sender: FDA-Public Use
  Company Number: US-BAYER-2011-048030

PATIENT
  Age: 30 Year
  Sex: Female
  Weight: 102.4 kg

DRUGS (20)
  1. YAZ [Suspect]
     Indication: MENORRHAGIA
     Dosage: UNK
     Dates: start: 20090201, end: 20090501
  2. YAZ [Suspect]
     Indication: FATIGUE
  3. VITAMIN D [Concomitant]
     Dosage: 400 UNITS TO 1000 INTERNATIONAL UNITS DAILY
     Route: 048
     Dates: start: 20080101, end: 20090409
  4. AZITHROMYCIN [Concomitant]
     Indication: INFECTION
     Dosage: 250 MG, UNK
     Dates: start: 20090401
  5. PREVACID [Concomitant]
     Indication: GASTROOESOPHAGEAL REFLUX DISEASE
     Dosage: 30 MG, DAILY
     Route: 048
     Dates: start: 20020101
  6. LYRICA [Concomitant]
     Indication: FIBROMYALGIA
     Dosage: 75 MG, TID
     Route: 048
     Dates: start: 20081206, end: 20110329
  7. ZOLOFT [Concomitant]
     Indication: DEPRESSION
     Dosage: 150 MG, DAILY
     Route: 048
     Dates: start: 20000101
  8. LORAZEPAM [Concomitant]
     Indication: ANXIETY
     Dosage: 0.5 MG, UNK
     Dates: start: 20080101, end: 20090101
  9. CRESTOR [Concomitant]
     Dosage: 10 MG, DAILY
     Route: 048
     Dates: start: 20080101
  10. OXYCODONE HCL AND ACETAMINOPHEN [Concomitant]
     Indication: PAIN
     Dosage: 5/325 MG 1 OR 2 TABLETS 3 TIMES DAILY
     Route: 048
     Dates: start: 20080703, end: 20090112
  11. MAGNESIUM [Concomitant]
     Dosage: 100 MG, UNK
     Route: 048
     Dates: start: 20090316, end: 20090611
  12. PROMETHAZINE [Concomitant]
     Indication: MULTIPLE ALLERGIES
     Dosage: 25 MG, 6 TO 8 HOURS AS NEEDED
     Route: 048
     Dates: start: 20090112, end: 20090429
  13. VITAMIN B COMPLEX/B12 [VITAMIN-B-KOMPLEX STANDARD] [Concomitant]
     Dosage: DAILY
     Dates: start: 20090409, end: 20100913
  14. PROPOXYPHENE NAPSYLATE W/ ACETAMINOPHEN [Concomitant]
     Indication: PAIN
     Dosage: 100/650 MG, 1 TO 2 TABLETS EVERY 4 HOURS AS NEEDED
     Dates: start: 20090401, end: 20090501
  15. YAZ [Suspect]
     Indication: DYSMENORRHOEA
  16. B COMPLEX WITH VITAMIN C [Concomitant]
     Dosage: DAILY
     Route: 048
     Dates: start: 20090409, end: 20100913
  17. MULTI-VITAMIN [Concomitant]
     Dosage: DAILY
     Route: 048
     Dates: start: 20090409, end: 20100913
  18. PROMETHAZINE [Concomitant]
     Indication: NAUSEA
  19. ZINC SULFATE [Concomitant]
     Dosage: DAILY
     Dates: start: 20090409
  20. FISH OIL [Concomitant]
     Dosage: 1000 TO 1200 MG, 1 TO 2 CAPSULES DAILY TO TWICE DAILY
     Route: 048
     Dates: start: 20090409, end: 20100913

REACTIONS (6)
  - EMOTIONAL DISTRESS [None]
  - ANHEDONIA [None]
  - ABDOMINAL PAIN UPPER [None]
  - CHOLECYSTITIS [None]
  - FEAR [None]
  - BILIARY COLIC [None]
